FAERS Safety Report 25941140 (Version 1)
Quarter: 2025Q4

REPORT INFORMATION
  Report Type: Spontaneous
  Country: JP (occurrence: JP)
  Receive Date: 20251020
  Receipt Date: 20251020
  Transmission Date: 20260118
  Serious: Yes (Death, Other)
  Sender: CHEPLAPHARM
  Company Number: JP-CP_KK-2025JP005050

PATIENT
  Age: 47 Year
  Sex: Female

DRUGS (12)
  1. CAPECITABINE [Suspect]
     Active Substance: CAPECITABINE
     Indication: Breast cancer
     Dosage: BID?DAILY DOSE: 2400 MILLIGRAM
     Route: 048
     Dates: start: 20250812, end: 20250825
  2. TYKERB [Suspect]
     Active Substance: LAPATINIB DITOSYLATE
     Indication: Breast cancer
     Route: 048
     Dates: start: 20250812, end: 20250901
  3. FENTANYL [Concomitant]
     Active Substance: FENTANYL
     Dosage: TAPE (INCLUDING POULTICE), PERCUTANEOUS USE
  4. NEXIUM [Concomitant]
     Active Substance: ESOMEPRAZOLE MAGNESIUM
     Route: 048
  5. ZINC [Concomitant]
     Active Substance: ZINC
     Route: 048
  6. NAPROXEN SODIUM [Concomitant]
     Active Substance: NAPROXEN SODIUM
     Route: 048
  7. METOCLOPRAMIDE [Concomitant]
     Active Substance: METOCLOPRAMIDE
     Route: 048
  8. CALONAL [Concomitant]
     Active Substance: ACETAMINOPHEN
     Route: 048
  9. REFLEX [Concomitant]
     Active Substance: MIRTAZAPINE
     Route: 048
  10. Adona [Concomitant]
     Route: 048
  11. TRANSAMIN [Concomitant]
     Active Substance: TRANEXAMIC ACID
     Route: 048
  12. DECADRON [Concomitant]
     Active Substance: DEXAMETHASONE
     Route: 048

REACTIONS (4)
  - Gastric ulcer haemorrhage [Fatal]
  - Depressed level of consciousness [Unknown]
  - Shock [Unknown]
  - Gastric ulcer [Unknown]

NARRATIVE: CASE EVENT DATE: 20250901
